FAERS Safety Report 12209729 (Version 1)
Quarter: 2016Q1

REPORT INFORMATION
  Report Type: Other
  Country: GB (occurrence: GB)
  Receive Date: 20160325
  Receipt Date: 20160325
  Transmission Date: 20160526
  Serious: Yes (Other)
  Sender: FDA-Public Use
  Company Number: GB-CIPLA LTD.-2016GB02807

PATIENT

DRUGS (8)
  1. PROTOPIC [Concomitant]
     Active Substance: TACROLIMUS
     Dosage: UNK, APPLY AS DIRECTED
     Route: 065
     Dates: start: 20160106, end: 20160203
  2. MOMETASONE [Concomitant]
     Active Substance: MOMETASONE
     Dosage: 1 DF, QD
     Route: 065
     Dates: start: 20160106, end: 20160203
  3. VENTOLIN [Concomitant]
     Active Substance: ALBUTEROL SULFATE
     Dosage: 2 DF, AS NECESSARY, 4-6 HRS
     Route: 065
     Dates: start: 20150723
  4. TERBINAFINE. [Suspect]
     Active Substance: TERBINAFINE
     Dosage: UNK
     Route: 065
     Dates: start: 20160302
  5. KETOCONAZOLE. [Concomitant]
     Active Substance: KETOCONAZOLE
     Dosage: UNK, USE AS DIRECTED AS A BODY WASH
     Route: 065
     Dates: start: 20151214, end: 20160111
  6. BECONASE AQ [Concomitant]
     Active Substance: BECLOMETHASONE DIPROPIONATE MONOHYDRATE
     Dosage: 1 DF, BID
     Route: 065
     Dates: start: 20140507
  7. BECLOMETASONE [Concomitant]
     Active Substance: BECLOMETHASONE DIPROPIONATE
     Dosage: 2 DF, BID
     Route: 065
     Dates: start: 20150720
  8. CLENIL MODULITE [Concomitant]
     Active Substance: BECLOMETHASONE DIPROPIONATE
     Dosage: 2 DF, BID
     Route: 065
     Dates: start: 20150723

REACTIONS (2)
  - Erythema multiforme [Recovering/Resolving]
  - Antiphospholipid antibodies positive [Unknown]

NARRATIVE: CASE EVENT DATE: 20160302
